FAERS Safety Report 9618424 (Version 2)
Quarter: 2013Q4

REPORT INFORMATION
  Report Type: Report from Study
  Country: DE (occurrence: DE)
  Receive Date: 20131014
  Receipt Date: 20131022
  Transmission Date: 20140711
  Serious: Yes (Hospitalization)
  Sender: FDA-Public Use
  Company Number: DE-ROCHE-1286933

PATIENT
  Age: 77 Year
  Sex: Female
  Weight: 61.5 kg

DRUGS (3)
  1. CAPECITABINE [Suspect]
     Indication: RECTAL CANCER
     Dosage: LAST DATE PRIOR TO SAE:31/MAR/2011, DOSE:2500
     Route: 048
     Dates: start: 20110221
  2. BISOPROLOL [Concomitant]
     Indication: HYPERTONIA
     Route: 048
  3. ACETYLSALICYLIC ACID [Concomitant]
     Indication: PROPHYLAXIS
     Route: 048
     Dates: start: 20131001

REACTIONS (1)
  - Post procedural fistula [Recovered/Resolved]
